FAERS Safety Report 9098954 (Version 1)
Quarter: 2013Q1

REPORT INFORMATION
  Report Type: Other
  Country: FR (occurrence: FR)
  Receive Date: 20130213
  Receipt Date: 20130213
  Transmission Date: 20140127
  Serious: Yes (Hospitalization)
  Sender: FDA-Public Use
  Company Number: FR-SHIRE-ALL1-2013-00777

PATIENT
  Age: 86 Year
  Sex: Male

DRUGS (7)
  1. XAGRID [Suspect]
     Indication: ESSENTIAL THROMBOCYTHAEMIA
     Dosage: UNK DF, UNK
     Route: 048
     Dates: start: 201210
  2. ZINNAT [Suspect]
     Indication: BRONCHITIS
     Dosage: UNK, UNKNOWN
     Route: 065
     Dates: start: 20130104, end: 20130108
  3. KARDEGIC [Suspect]
     Indication: PRODUCT USED FOR UNKNOWN INDICATION
     Dosage: UNK UNK, UNKNOWN
     Route: 065
     Dates: start: 2006
  4. XATRAL [Concomitant]
     Indication: PRODUCT USED FOR UNKNOWN INDICATION
     Dosage: UNK, UNKNOWN
     Route: 065
  5. OMEPRAZOLE [Concomitant]
     Indication: PRODUCT USED FOR UNKNOWN INDICATION
     Dosage: UNK, UNKNOWN
     Route: 065
  6. PIVALONE                           /00803802/ [Concomitant]
     Indication: BRONCHITIS
     Dosage: UNK, UNKNOWN
     Route: 045
     Dates: start: 20130104
  7. TUSSIDANE [Concomitant]
     Indication: BRONCHITIS
     Dosage: UNK, UNKNOWN
     Route: 065
     Dates: start: 20130104

REACTIONS (3)
  - Thrombocytopenia [Not Recovered/Not Resolved]
  - Spontaneous haematoma [None]
  - Activated partial thromboplastin time prolonged [None]
